FAERS Safety Report 6528793-8 (Version None)
Quarter: 2010Q1

REPORT INFORMATION
  Report Type: 
  Country: None (occurrence: None)
  Receive Date: 20100106
  Receipt Date: 20091228
  Transmission Date: 20100710
  Serious: Yes (Hospitalization)
  Sender: FDA-Public Use
  Company Number: DE-WYE-G05236609

PATIENT
  Sex: Male
  Weight: 14.5 kg

DRUGS (2)
  1. REFACTO [Suspect]
     Indication: FACTOR VIII DEFICIENCY
     Dosage: REGULAR DOSAGE 3X 250 IU/WEEK
     Route: 042
  2. REFACTO [Suspect]
     Dosage: 3X 1000 IU/DAY
     Route: 042
     Dates: start: 20031009, end: 20031031

REACTIONS (2)
  - FALL [None]
  - SUBDURAL HAEMATOMA [None]
